FAERS Safety Report 9770125 (Version 2)
Quarter: 2013Q4

REPORT INFORMATION
  Report Type: Spontaneous
  Country: US (occurrence: US)
  Receive Date: 20131218
  Receipt Date: 20131218
  Transmission Date: 20140711
  Serious: No
  Sender: FDA-Public Use
  Company Number: US-VERTEX PHARMACEUTICALS INC-AE-2011-000588

PATIENT
  Sex: 0

DRUGS (12)
  1. INCIVEK [Suspect]
     Indication: HEPATITIS C
     Route: 048
     Dates: start: 20110719, end: 20110728
  2. PEGASYS [Concomitant]
     Indication: HEPATITIS C
     Dates: start: 20110719
  3. RIBAVIRIN [Concomitant]
     Indication: HEPATITIS C
     Dates: start: 20110719
  4. PERCOCET [Concomitant]
     Indication: PAIN
  5. NORVASC [Concomitant]
     Indication: BLOOD PRESSURE
     Route: 048
  6. ZANTAC [Concomitant]
     Indication: GASTROOESOPHAGEAL REFLUX DISEASE
     Route: 048
  7. LYRICA [Concomitant]
     Indication: PARAESTHESIA
     Route: 048
  8. GABAPENTIN [Concomitant]
     Indication: PARAESTHESIA
     Route: 048
  9. CLEMASTINE [Concomitant]
     Indication: RHINORRHOEA
     Route: 048
  10. FLEXERIL [Concomitant]
     Route: 048
  11. DOCUSATE [Concomitant]
     Indication: PROPHYLAXIS
     Route: 048
  12. WOMENS VITAMIN [Concomitant]
     Route: 048

REACTIONS (5)
  - Dizziness [Unknown]
  - Somnolence [Unknown]
  - Fatigue [Unknown]
  - Asthenia [Unknown]
  - Rash [Unknown]
